FAERS Safety Report 12084527 (Version 1)
Quarter: 2016Q1

REPORT INFORMATION
  Report Type: Spontaneous
  Country: FR (occurrence: FR)
  Receive Date: 20160217
  Receipt Date: 20160217
  Transmission Date: 20160526
  Serious: Yes (Hospitalization)
  Sender: FDA-Public Use
  Company Number: FR-PFIZER INC-2016083375

PATIENT
  Age: 68 Year
  Sex: Female

DRUGS (13)
  1. CORTANCYL [Concomitant]
     Active Substance: PREDNISONE
     Dosage: 30 MG, DAILY
  2. CORTANCYL [Concomitant]
     Active Substance: PREDNISONE
     Dosage: UNK
     Dates: start: 20160124, end: 20160130
  3. ELUDRILPERIO [Concomitant]
     Dosage: 2X/DAY
     Route: 002
     Dates: start: 20160116, end: 20160119
  4. SOLU-MEDROL [Suspect]
     Active Substance: METHYLPREDNISOLONE SODIUM SUCCINATE
     Indication: RHEUMATOID ARTHRITIS
     Dosage: 10 MG, 1X/DAY
     Route: 042
     Dates: start: 20160131
  5. MEROPENEM. [Concomitant]
     Active Substance: MEROPENEM
     Indication: ENDOCARDITIS
     Dosage: 100 ML IN 30 MINUTES, EVERY 8 HOURS
     Route: 041
     Dates: start: 20160112, end: 20160126
  6. MYDRIATICUM [Concomitant]
     Active Substance: TROPICAMIDE
     Dosage: 2 MG
     Dates: start: 20160118, end: 20160119
  7. CIPROFLOXACINE /00697201/ [Suspect]
     Active Substance: CIPROFLOXACIN
     Indication: ENDOCARDITIS
     Dosage: 200 MG, 3X/DAY
     Route: 042
     Dates: start: 20160130
  8. CIPROFLOXACINE PFIZER [Suspect]
     Active Substance: CIPROFLOXACIN
     Indication: ENDOCARDITIS
     Dosage: 600 MG, DAILY (200 MG, 1IN /8 HOUR
     Route: 048
     Dates: start: 20160126, end: 20160129
  9. MOVICOL /08437601/ [Concomitant]
     Dosage: 2 DF, DAILY
     Route: 048
     Dates: start: 20160110, end: 20160121
  10. COLIMYCINE /00013203/ [Concomitant]
     Active Substance: COLISTIMETHATE SODIUM
     Indication: ENDOCARDITIS
     Dosage: 100 ML, 2X/DAY
     Route: 041
     Dates: start: 20160108, end: 20160126
  11. LAROSCORBINE [Concomitant]
     Active Substance: ASCORBIC ACID
     Dosage: 3 G, 24H
     Route: 042
     Dates: start: 20160108, end: 20160126
  12. AMIKACINE /00391001/ [Suspect]
     Active Substance: AMIKACIN
     Indication: ENDOCARDITIS
     Dosage: 250 ML, 1X/DAY
     Route: 042
     Dates: start: 20151216
  13. LOVENOX [Concomitant]
     Active Substance: ENOXAPARIN SODIUM
     Dosage: 4000 IU, UNK
     Dates: start: 20160114, end: 20160207

REACTIONS (1)
  - Hypokalaemia [Recovered/Resolved]

NARRATIVE: CASE EVENT DATE: 20160201
